FAERS Safety Report 23829782 (Version 1)
Quarter: 2024Q2

REPORT INFORMATION
  Report Type: Report from Study
  Country: KR (occurrence: KR)
  Receive Date: 20240508
  Receipt Date: 20240508
  Transmission Date: 20240715
  Serious: Yes (Other)
  Sender: FDA-Public Use
  Company Number: KR-TAKEDA-2024TUS041567

PATIENT
  Age: 65 Year
  Sex: Female

DRUGS (13)
  1. BRIGATINIB [Suspect]
     Active Substance: BRIGATINIB
     Indication: Non-small cell lung cancer
     Dosage: 90 MILLIGRAM, QD
     Route: 048
     Dates: start: 20221026, end: 20221101
  2. BRIGATINIB [Suspect]
     Active Substance: BRIGATINIB
     Dosage: 180 MILLIGRAM, QD
     Route: 048
     Dates: start: 20221102, end: 20221112
  3. BRIGATINIB [Suspect]
     Active Substance: BRIGATINIB
     Dosage: 180 MILLIGRAM, QD
     Route: 048
     Dates: start: 20221116
  4. CODAEWON FORTE [Concomitant]
     Indication: Cough
     Dosage: 60 MILLILITER
     Route: 048
     Dates: start: 20221020
  5. LIPITOR [Concomitant]
     Active Substance: ATORVASTATIN CALCIUM
     Indication: Dyslipidaemia
     Dosage: 10 MILLIGRAM
     Route: 048
     Dates: start: 20221101
  6. TRELEGY ELLIPTA [Concomitant]
     Active Substance: FLUTICASONE FUROATE\UMECLIDINIUM BROMIDE\VILANTEROL TRIFENATATE
     Indication: Chronic obstructive pulmonary disease
     Dosage: UNK
     Route: 065
     Dates: start: 20221019
  7. ACETAMINOPHEN\CODEINE PHOSPHATE [Concomitant]
     Active Substance: ACETAMINOPHEN\CODEINE PHOSPHATE
     Indication: Liver function test
     Dosage: UNK
     Route: 048
     Dates: start: 20221113
  8. Litorvazet [Concomitant]
     Indication: Dyslipidaemia
     Dosage: UNK
     Route: 048
     Dates: start: 20230119
  9. RAPAMUNE [Concomitant]
     Active Substance: SIROLIMUS
     Indication: Lymphangioleiomyomatosis
     Dosage: UNK
     Route: 048
     Dates: start: 20230217, end: 20240420
  10. RAPAMUNE [Concomitant]
     Active Substance: SIROLIMUS
     Dosage: UNK
     Route: 048
     Dates: start: 20230303
  11. LOPERAMIDE [Concomitant]
     Active Substance: LOPERAMIDE
     Indication: Diarrhoea
     Dosage: UNK
     Route: 048
     Dates: start: 20230217
  12. BANAN [Concomitant]
     Active Substance: CEFPODOXIME PROXETIL
     Indication: Illness
     Dosage: UNK
     Route: 048
     Dates: start: 20230220, end: 20230224
  13. TYLENOL [Concomitant]
     Active Substance: ACETAMINOPHEN
     Indication: Illness
     Dosage: UNK
     Route: 048
     Dates: start: 20230220, end: 20230225

REACTIONS (1)
  - Diabetes mellitus [Not Recovered/Not Resolved]

NARRATIVE: CASE EVENT DATE: 20230303
